FAERS Safety Report 4518956-5 (Version None)
Quarter: 2004Q4

REPORT INFORMATION
  Report Type: 
  Country: None (occurrence: None)
  Receive Date: 20041203
  Receipt Date: 20041203
  Transmission Date: 20050328
  Serious: Yes (Other)
  Sender: FDA-Public Use
  Company Number: None

PATIENT
  Age: 76 Year
  Sex: Male
  Weight: 114.3065 kg

DRUGS (2)
  1. ROSUVASTATIN 5 MG [Suspect]
     Indication: HYPERCHOLESTEROLAEMIA
     Dosage: 5 MG QD
     Dates: start: 20040322
  2. ROSUVASTATIN 5 MG [Suspect]
     Indication: HYPERCHOLESTEROLAEMIA
     Dosage: 5 MG QD
     Dates: start: 20040801

REACTIONS (1)
  - MYALGIA [None]
